FAERS Safety Report 8028162-8 (Version None)
Quarter: 2012Q1

REPORT INFORMATION
  Report Type: 
  Country: None (occurrence: None)
  Receive Date: 20120106
  Receipt Date: 20120104
  Transmission Date: 20120608
  Serious: Yes (Other)
  Sender: FDA-Public Use
  Company Number: GB-ROCHE-1027632

PATIENT
  Sex: Female
  Weight: 49 kg

DRUGS (2)
  1. METHOTREXATE [Concomitant]
  2. MABTHERA [Suspect]
     Indication: PRODUCT USED FOR UNKNOWN INDICATION
     Dates: start: 20100216

REACTIONS (1)
  - BASAL CELL CARCINOMA [None]
